FAERS Safety Report 8290345-X (Version None)
Quarter: 2012Q2

REPORT INFORMATION
  Report Type: 
  Country: None (occurrence: None)
  Receive Date: 20120417
  Receipt Date: 20120403
  Transmission Date: 20120825
  Serious: Yes (Hospitalization)
  Sender: FDA-Public Use
  Company Number: GB-MYLANLABS-2012S1005513

PATIENT
  Age: 28 Year
  Sex: Female
  Weight: 70 kg

DRUGS (1)
  1. DOXYCYCLINE [Suspect]
     Indication: PRODUCT USED FOR UNKNOWN INDICATION
     Route: 048

REACTIONS (3)
  - FOREIGN BODY [None]
  - OESOPHAGEAL ULCER [None]
  - BURN OESOPHAGEAL [None]
